FAERS Safety Report 5656687-9 (Version None)
Quarter: 2008Q1

REPORT INFORMATION
  Report Type: 
  Country: None (occurrence: None)
  Receive Date: 20080306
  Receipt Date: 20080306
  Transmission Date: 20080703
  Serious: Yes (Hospitalization, Disabling)
  Sender: FDA-Public Use
  Company Number: None

PATIENT
  Age: 21 Year
  Sex: Male

DRUGS (10)
  1. PHENYTOIN [Suspect]
     Indication: CONVULSION
     Dosage: 900MG ONE TIME IV
     Route: 042
     Dates: start: 20080122, end: 20080123
  2. NORTRIPTYLINE HCL [Concomitant]
  3. OXYCODONE HCL [Concomitant]
  4. GABAPENTIN [Concomitant]
  5. CELECOXIB [Concomitant]
  6. QUETIAPINE [Concomitant]
  7. METOPROLOL TARTRATE [Concomitant]
  8. ESOMEPRAZOLE MAGNESIUM [Concomitant]
  9. WARFARIN SODIUM [Concomitant]
  10. SENNA [Concomitant]

REACTIONS (8)
  - ANTICONVULSANT DRUG LEVEL BELOW THERAPEUTIC [None]
  - BLOOD CREATININE INCREASED [None]
  - EOSINOPHILS URINE PRESENT [None]
  - NEPHRITIS INTERSTITIAL [None]
  - PAIN IN EXTREMITY [None]
  - RASH MACULAR [None]
  - RASH PRURITIC [None]
  - RENAL INJURY [None]
